FAERS Safety Report 4994257-6 (Version None)
Quarter: 2006Q1

REPORT INFORMATION
  Report Type: 
  Country: None (occurrence: None)
  Receive Date: 20060313
  Receipt Date: 20051212
  Transmission Date: 20060701
  Serious: Yes (Hospitalization, Other)
  Sender: FDA-Public Use
  Company Number: PHEH2005US12386

PATIENT
  Age: 51 Year
  Sex: Female
  Weight: 52.6 kg

DRUGS (3)
  1. TRILEPTAL [Suspect]
     Indication: COMPLEX PARTIAL SEIZURES
     Dosage: 1350 MG,QD,ORAL
     Route: 048
     Dates: start: 20030301
  2. ZONEGRAN [Concomitant]
  3. LAXATIVES (NO INGREDIENTS/SUBSTANCES) [Concomitant]

REACTIONS (21)
  - ASTHENIA [None]
  - COLOUR BLINDNESS [None]
  - CONCUSSION [None]
  - CONDITION AGGRAVATED [None]
  - DIARRHOEA [None]
  - DIZZINESS [None]
  - FALL [None]
  - FATIGUE [None]
  - FEELING ABNORMAL [None]
  - GRAND MAL CONVULSION [None]
  - HAEMORRHAGE [None]
  - HEAD INJURY [None]
  - HOT FLUSH [None]
  - HYPONATRAEMIA [None]
  - HYPOTHALAMO-PITUITARY DISORDERS [None]
  - MYALGIA [None]
  - NEPHROLITHIASIS [None]
  - NYSTAGMUS [None]
  - PAIN [None]
  - SOMNOLENCE [None]
  - SPEECH DISORDER [None]
